FAERS Safety Report 20334341 (Version 2)
Quarter: 2022Q1

REPORT INFORMATION
  Report Type: Report from Study
  Country: US (occurrence: US)
  Receive Date: 20220114
  Receipt Date: 20220118
  Transmission Date: 20220423
  Serious: Yes (Hospitalization)
  Sender: FDA-Public Use
  Company Number: US-JNJFOC-20220110196

PATIENT
  Age: 27 Year
  Sex: Male

DRUGS (4)
  1. INVEGA SUSTENNA [Suspect]
     Active Substance: PALIPERIDONE PALMITATE
     Indication: Schizoaffective disorder bipolar type
     Route: 030
     Dates: start: 20220104, end: 20220104
  2. INVEGA SUSTENNA [Suspect]
     Active Substance: PALIPERIDONE PALMITATE
  3. INVEGA SUSTENNA [Suspect]
     Active Substance: PALIPERIDONE PALMITATE
  4. LEXAPRO [Concomitant]
     Active Substance: ESCITALOPRAM OXALATE

REACTIONS (9)
  - Confusional state [Not Recovered/Not Resolved]
  - Vomiting [Unknown]
  - Heart rate increased [Unknown]
  - Hypertension [Unknown]
  - Tremor [Unknown]
  - Musculoskeletal stiffness [Unknown]
  - Muscle spasms [Unknown]
  - Psychotic disorder [Unknown]
  - Amnesia [Unknown]

NARRATIVE: CASE EVENT DATE: 20220105
